FAERS Safety Report 8573833 (Version 3)
Quarter: 2013Q3

REPORT INFORMATION
  Report Type: Spontaneous
  Country: US (occurrence: US)
  Receive Date: 20120522
  Receipt Date: 20130730
  Transmission Date: 20140515
  Serious: No
  Sender: FDA-Public Use
  Company Number: US-ASTRAZENECA-2011SE73110

PATIENT
  Age: 24282 Day
  Sex: Female
  Weight: 65.8 kg

DRUGS (11)
  1. NEXIUM [Suspect]
     Indication: GASTROOESOPHAGEAL REFLUX DISEASE
     Route: 048
  2. NEXIUM [Suspect]
     Indication: EROSIVE OESOPHAGITIS
     Route: 048
  3. PRILOSEC [Suspect]
     Route: 048
  4. PRILOSEC [Suspect]
     Dosage: GENERIC, TWICE DAILY
     Route: 048
  5. PREVACID [Concomitant]
  6. PROTONIX [Concomitant]
  7. LISINOPRIL [Concomitant]
     Indication: HYPERTENSION
  8. PRAVACHOL [Concomitant]
     Indication: BLOOD CHOLESTEROL ABNORMAL
  9. METFORMIN [Concomitant]
     Indication: DIABETES MELLITUS
  10. CELEXA [Concomitant]
     Indication: DEPRESSION
  11. REMERION [Concomitant]
     Indication: DEPRESSION

REACTIONS (13)
  - Gastrooesophageal reflux disease [Not Recovered/Not Resolved]
  - Hiatus hernia [Unknown]
  - Aspiration [Unknown]
  - Anal sphincter atony [Unknown]
  - Weight increased [Unknown]
  - Change of bowel habit [Unknown]
  - Dyspepsia [Unknown]
  - Cough [Not Recovered/Not Resolved]
  - Dysphonia [Not Recovered/Not Resolved]
  - Liver function test abnormal [Unknown]
  - Malaise [Unknown]
  - Drug dose omission [Not Recovered/Not Resolved]
  - Drug ineffective [Unknown]
